FAERS Safety Report 4961965-2 (Version None)
Quarter: 2006Q2

REPORT INFORMATION
  Report Type: 
  Country: None (occurrence: None)
  Receive Date: 20060404
  Receipt Date: 20050805
  Transmission Date: 20061013
  Serious: Yes (Hospitalization)
  Sender: FDA-Public Use
  Company Number: US-MERCK-0508USA01481

PATIENT
  Age: 65 Year
  Sex: Female
  Weight: 68 kg

DRUGS (22)
  1. VIOXX [Suspect]
     Indication: OSTEOARTHRITIS
     Route: 048
     Dates: start: 19990801
  2. VIOXX [Suspect]
     Route: 048
     Dates: start: 19990801, end: 20000809
  3. VIOXX [Suspect]
     Route: 048
     Dates: start: 20010801
  4. VIOXX [Suspect]
     Route: 048
     Dates: start: 20040401, end: 20040930
  5. VIOXX [Suspect]
     Route: 048
     Dates: start: 20010615
  6. SYNTHROID [Concomitant]
     Route: 065
  7. DILTIAZEM HYDROCHLORIDE [Concomitant]
     Route: 065
  8. FOSAMAX [Concomitant]
     Route: 048
  9. FLEXERIL [Concomitant]
     Route: 048
  10. ULTRAM [Concomitant]
     Route: 065
  11. PLAVIX [Concomitant]
     Route: 065
  12. LOPRESSOR [Concomitant]
     Route: 065
  13. GENTAMICIN [Concomitant]
     Route: 065
  14. CLONAZEPAM [Concomitant]
     Route: 065
  15. NITROFURANTOIN [Concomitant]
     Route: 065
  16. TOBRADEX [Concomitant]
     Route: 065
  17. PROMETHAZINE [Concomitant]
     Route: 065
  18. HYDROCODONE BITARTRATE [Concomitant]
     Route: 065
  19. TRIAMCINOLONE [Concomitant]
     Route: 065
  20. RHINOCORT [Concomitant]
     Route: 065
  21. AMOXICILLIN [Concomitant]
     Route: 065
  22. DARVOCET [Concomitant]
     Route: 065

REACTIONS (31)
  - ANAL FISSURE [None]
  - ARTERIOSCLEROSIS [None]
  - ARTHRALGIA [None]
  - BACK PAIN [None]
  - CHEST PAIN [None]
  - COLONIC POLYP [None]
  - COORDINATION ABNORMAL [None]
  - CORONARY ARTERY DISEASE [None]
  - CORONARY ARTERY OCCLUSION [None]
  - CORONARY ARTERY STENOSIS [None]
  - DACRYOSTENOSIS ACQUIRED [None]
  - DIZZINESS [None]
  - DRY EYE [None]
  - FACIAL PARESIS [None]
  - FALL [None]
  - FATIGUE [None]
  - FIBROMYALGIA [None]
  - GLUCOSE TOLERANCE IMPAIRED [None]
  - HEADACHE [None]
  - HYPERLIPIDAEMIA [None]
  - INTERVERTEBRAL DISC DEGENERATION [None]
  - LIPOMA [None]
  - MUSCULOSKELETAL CHEST PAIN [None]
  - NASAL DISORDER [None]
  - NO THERAPEUTIC RESPONSE [None]
  - OSTEOPENIA [None]
  - PLANTAR FASCIITIS [None]
  - SOFT TISSUE INJURY [None]
  - SPINAL COLUMN STENOSIS [None]
  - URINARY TRACT INFECTION [None]
  - VERTIGO [None]
